FAERS Safety Report 5942925-1 (Version None)
Quarter: 2008Q4

REPORT INFORMATION
  Report Type: 
  Country: None (occurrence: None)
  Receive Date: 20081103
  Receipt Date: 20081020
  Transmission Date: 20090506
  Serious: Yes (Other)
  Sender: FDA-Public Use
  Company Number: 230934K08USA

PATIENT
  Age: 54 Year
  Sex: Female
  Weight: 94 kg

DRUGS (5)
  1. REBIF [Suspect]
     Indication: MULTIPLE SCLEROSIS
     Dosage: 44 MCG, 3 IN 1 WEEKS, SUBCUTANEOUS
     Route: 058
     Dates: start: 20071221
  2. INDERAL [Concomitant]
  3. PROVIGIL [Concomitant]
  4. LIPITOR [Concomitant]
  5. PRILOSEC [Concomitant]

REACTIONS (5)
  - GLAUCOMA [None]
  - HAEMATOCRIT DECREASED [None]
  - INJECTION SITE PAIN [None]
  - PIGMENT DISPERSION SYNDROME [None]
  - ROAD TRAFFIC ACCIDENT [None]
